FAERS Safety Report 10979821 (Version 1)
Quarter: 2015Q2

REPORT INFORMATION
  Report Type: Spontaneous
  Country: US (occurrence: US)
  Receive Date: 20150402
  Receipt Date: 20150402
  Transmission Date: 20150821
  Serious: No
  Sender: FDA-Public Use
  Company Number: US-SA-2014SA059492

PATIENT
  Age: 9 Year
  Sex: Male
  Weight: 31.3 kg

DRUGS (1)
  1. ALLEGRA [Suspect]
     Active Substance: FEXOFENADINE HYDROCHLORIDE
     Indication: SEASONAL ALLERGY
     Dosage: DOSAGE: ODT
     Route: 048
     Dates: start: 20120401, end: 20140201

REACTIONS (4)
  - Product taste abnormal [Recovered/Resolved]
  - Dry mouth [Recovered/Resolved]
  - Dysgeusia [Recovered/Resolved]
  - Extra dose administered [Unknown]

NARRATIVE: CASE EVENT DATE: 20140401
